FAERS Safety Report 21928438 (Version 1)
Quarter: 2023Q1

REPORT INFORMATION
  Report Type: Spontaneous
  Country: MX (occurrence: MX)
  Receive Date: 20230130
  Receipt Date: 20230130
  Transmission Date: 20230417
  Serious: Yes (Death, Life-Threatening, Hospitalization, Other)
  Sender: FDA-Public Use
  Company Number: None

PATIENT
  Age: 20 Year
  Sex: Female

DRUGS (6)
  1. ALPRAZOLAM [Interacting]
     Active Substance: ALPRAZOLAM
     Indication: Depression
     Dosage: UNK
     Route: 065
  2. AMITRIPTYLINE [Interacting]
     Active Substance: AMITRIPTYLINE
     Indication: Depression
     Dosage: UNK
     Route: 065
  3. CRATAEGUS [Interacting]
     Active Substance: HAWTHORN LEAF WITH FLOWER
     Indication: Product used for unknown indication
     Dosage: UNK (INGESTED OVER HALF THE TABLETS)
     Route: 048
  4. OMEPRAZOLE [Interacting]
     Active Substance: OMEPRAZOLE
     Indication: Product used for unknown indication
     Dosage: 20 MILLIGRAM
     Route: 042
  5. ONDANSETRON [Interacting]
     Active Substance: ONDANSETRON
     Indication: Product used for unknown indication
     Dosage: 4 MILLIGRAM
     Route: 042
  6. CLOZAPINE [Interacting]
     Active Substance: CLOZAPINE
     Indication: Depression
     Dosage: UNK
     Route: 065

REACTIONS (9)
  - Cardiac arrest [Fatal]
  - Hypotension [Fatal]
  - Depressed level of consciousness [Fatal]
  - Unresponsive to stimuli [Fatal]
  - Bradycardia [Fatal]
  - Electrocardiogram QT prolonged [Fatal]
  - Ventricular fibrillation [Fatal]
  - Sinus arrest [Fatal]
  - Drug interaction [Fatal]
